FAERS Safety Report 7683368-2 (Version None)
Quarter: 2011Q3

REPORT INFORMATION
  Report Type: 
  Country: None (occurrence: None)
  Receive Date: 20110815
  Receipt Date: 20110805
  Transmission Date: 20111222
  Serious: Yes (Other)
  Sender: FDA-Public Use
  Company Number: BR-ASTRAZENECA-2011SE47481

PATIENT
  Age: 87 Year
  Sex: Female

DRUGS (10)
  1. VERAPAMIL [Concomitant]
     Route: 048
  2. OMEPRAZOLE [Suspect]
     Indication: GASTROOESOPHAGEAL REFLUX DISEASE
     Dosage: OD EVERY OTHER DAY
     Route: 048
  3. CLORANA [Concomitant]
     Route: 048
  4. INDAPAMIDE [Concomitant]
     Route: 048
  5. UNKNOWN [Concomitant]
     Indication: SEDATIVE THERAPY
     Route: 048
  6. LOSARTANA [Concomitant]
     Route: 048
  7. NEXIUM [Suspect]
     Route: 048
     Dates: start: 20110701
  8. NEXIUM [Suspect]
     Route: 048
     Dates: end: 20110801
  9. NEXIUM [Suspect]
     Route: 048
     Dates: start: 20110701
  10. NEXIUM [Suspect]
     Route: 048

REACTIONS (7)
  - SYNCOPE [None]
  - INCORRECT DOSE ADMINISTERED [None]
  - TREMOR [None]
  - ABDOMINAL DISCOMFORT [None]
  - DRUG DOSE OMISSION [None]
  - ABDOMINAL PAIN UPPER [None]
  - OFF LABEL USE [None]
